FAERS Safety Report 22247475 (Version 1)
Quarter: 2023Q2

REPORT INFORMATION
  Report Type: Spontaneous
  Country: US (occurrence: US)
  Receive Date: 20230425
  Receipt Date: 20230425
  Transmission Date: 20230722
  Serious: No
  Sender: FDA-Public Use
  Company Number: US-ADVANZ PHARMA-202304002916

PATIENT

DRUGS (7)
  1. HYDROXYCHLOROQUINE [Interacting]
     Active Substance: HYDROXYCHLOROQUINE
     Indication: Product used for unknown indication
     Dosage: UNK
  2. ORENITRAM [Suspect]
     Active Substance: TREPROSTINIL
     Indication: Pulmonary arterial hypertension
     Dosage: UNK
     Dates: start: 20190531
  3. ORENITRAM [Suspect]
     Active Substance: TREPROSTINIL
     Indication: Pulmonary arterial hypertension
     Dosage: (SUPPLIED WITH ORENITRAM 2.5 MG AND 5 MG AND THE CURRENT DOSE WAS 7.5 MG TID)
     Route: 048
  4. ORENITRAM [Suspect]
     Active Substance: TREPROSTINIL
     Indication: Pulmonary arterial hypertension
     Dosage: ((SUPPLIED WITH ORENITRAM 2.5 MG AND 5 MG AND THE CURRENT DOSE WAS 7.5 MG TID))
     Route: 048
  5. METRONIDAZOLE [Interacting]
     Active Substance: METRONIDAZOLE
     Indication: Bacterial vaginosis
     Dosage: UNK
  6. TADALAFIL [Concomitant]
     Active Substance: TADALAFIL
     Dosage: UNK
  7. ADEMPAS [Concomitant]
     Active Substance: RIOCIGUAT
     Dosage: UNK

REACTIONS (3)
  - Heart rate increased [Unknown]
  - Drug interaction [Unknown]
  - Bacterial vaginosis [Unknown]
